FAERS Safety Report 24605088 (Version 1)
Quarter: 2024Q4

REPORT INFORMATION
  Report Type: Spontaneous
  Country: US (occurrence: US)
  Receive Date: 20241111
  Receipt Date: 20241111
  Transmission Date: 20250114
  Serious: No
  Sender: PARATEK PHARMACEUTICALS
  Company Number: US-PARATEK PHARMACEUTICALS, INC.-2024PTK00858

PATIENT
  Sex: Male

DRUGS (3)
  1. NUZYRA [Suspect]
     Active Substance: OMADACYCLINE
     Dosage: LOADING DOSE
     Route: 048
  2. NUZYRA [Suspect]
     Active Substance: OMADACYCLINE
     Dosage: 300 MG, 1X/DAY
     Route: 048
  3. NUZYRA [Suspect]
     Active Substance: OMADACYCLINE
     Dosage: 150 MG, 1X/DAY
     Route: 048

REACTIONS (1)
  - Nausea [Unknown]
